FAERS Safety Report 21348382 (Version 1)
Quarter: 2022Q3

REPORT INFORMATION
  Report Type: Spontaneous
  Country: US (occurrence: None)
  Receive Date: 20220916
  Receipt Date: 20220916
  Transmission Date: 20221027
  Serious: Yes (Other)
  Sender: FDA-Public Use
  Company Number: None

PATIENT
  Sex: Female

DRUGS (19)
  1. TETRABENAZINE [Suspect]
     Active Substance: TETRABENAZINE
     Indication: Huntington^s disease
     Route: 048
     Dates: start: 20190501
  2. ACETAMINOPHIN [Concomitant]
  3. CARBAMAZEPINE [Concomitant]
     Active Substance: CARBAMAZEPINE
  4. CLONAZEPAM [Concomitant]
     Active Substance: CLONAZEPAM
  5. CLOTRIM/BETA CRE DIPROP [Concomitant]
  6. DICLOFENAC [Concomitant]
     Active Substance: DICLOFENAC
  7. DICYCLOMINE TAB [Concomitant]
  8. GABAPENTIN [Concomitant]
     Active Substance: GABAPENTIN
  9. LEVETIRACETA TAB [Concomitant]
  10. LISINOPRIL [Concomitant]
     Active Substance: LISINOPRIL
  11. NORETHINDRON [Concomitant]
  12. OMEPRAZOLE SODIUM [Concomitant]
     Active Substance: OMEPRAZOLE SODIUM
  13. PROMETHAZINE [Concomitant]
     Active Substance: PROMETHAZINE HYDROCHLORIDE
  14. RIZATRIPTAN TAB [Concomitant]
  15. ROPINIROLE TAB [Concomitant]
  16. ROPINIROLE TAB [Concomitant]
  17. SERTRALINE HYDROCHLORIDE [Concomitant]
     Active Substance: SERTRALINE HYDROCHLORIDE
  18. TETRABENAZINE [Concomitant]
     Active Substance: TETRABENAZINE
  19. TOPIRAMATE TAB [Concomitant]

REACTIONS (2)
  - Surgery [None]
  - Therapy interrupted [None]
